FAERS Safety Report 14699294 (Version 1)
Quarter: 2018Q1

REPORT INFORMATION
  Report Type: Spontaneous
  Country: ES (occurrence: ES)
  Receive Date: 20180330
  Receipt Date: 20180330
  Transmission Date: 20180509
  Serious: Yes (Other)
  Sender: FDA-Public Use
  Company Number: ES-MYLANLABS-2018M1018585

PATIENT
  Age: 51 Year
  Sex: Male
  Weight: 53.3 kg

DRUGS (3)
  1. RITONAVIR. [Suspect]
     Active Substance: RITONAVIR
     Indication: HIV INFECTION
     Dosage: 800 MG, QD, DOSAGE FORM: UNSPECIFIED
     Route: 065
     Dates: start: 20160627, end: 20170202
  2. TENOFOVIR [Suspect]
     Active Substance: TENOFOVIR
     Indication: HIV INFECTION
     Dosage: 245 MG, QD, DOSAGE FORM: UNSPECIFIED
     Route: 065
     Dates: start: 20090413, end: 20170202
  3. DARUNAVIR [Suspect]
     Active Substance: DARUNAVIR
     Indication: HIV INFECTION
     Dosage: 800 MG, QD
     Route: 048
     Dates: start: 20160127, end: 20170202

REACTIONS (3)
  - Drug intolerance [Unknown]
  - Toxicity to various agents [Unknown]
  - Nephropathy toxic [Recovered/Resolved]

NARRATIVE: CASE EVENT DATE: 20161222
